FAERS Safety Report 9760169 (Version 1)
Quarter: 2013Q4

REPORT INFORMATION
  Report Type: Spontaneous
  Country: US (occurrence: None)
  Receive Date: 20131212
  Receipt Date: 20131212
  Transmission Date: 20140711
  Serious: Yes (Other)
  Sender: FDA-Public Use
  Company Number: AUR-APL-2013-10334

PATIENT
  Age: 33 Year
  Sex: Male
  Weight: 122 kg

DRUGS (10)
  1. GABAPENTIN [Suspect]
     Indication: PAIN
     Dates: start: 201011
  2. GABAPENTIN [Suspect]
     Indication: FIBROMYALGIA
     Dates: start: 201011
  3. MIRTAZAPINE (MIRTAZAPINE) [Suspect]
     Indication: DEPRESSION
  4. LYRICA (PREGABALIN) [Suspect]
     Indication: FIBROMYALGIA
     Dates: start: 201102
  5. LYRICA (PREGABALIN) [Suspect]
     Indication: NEURALGIA
     Dates: start: 201102
  6. CORTISONE (CORTISONE) [Suspect]
     Indication: BACK PAIN
  7. CYMBALTA (DULOXETINE HYDROCHLORIDE) [Suspect]
     Indication: FIBROMYALGIA
  8. SAVELLA [Suspect]
     Indication: FIBROMYALGIA
  9. CLONAZEPAM [Concomitant]
  10. TRAMADOL [Concomitant]

REACTIONS (18)
  - Feeling abnormal [None]
  - Malaise [None]
  - Fatigue [None]
  - Tremor [None]
  - Memory impairment [None]
  - Depression [None]
  - Decreased interest [None]
  - Somnolence [None]
  - Drug ineffective [None]
  - Pain [None]
  - Weight increased [None]
  - Irritable bowel syndrome [None]
  - Blood pressure abnormal [None]
  - Food intolerance [None]
  - Dehydration [None]
  - Physical disability [None]
  - Drug dose omission [None]
  - Drug withdrawal syndrome [None]
